FAERS Safety Report 23167376 (Version 2)
Quarter: 2023Q4

REPORT INFORMATION
  Report Type: Spontaneous
  Country: IT (occurrence: IT)
  Receive Date: 20231109
  Receipt Date: 20231121
  Transmission Date: 20240110
  Serious: Yes (Other)
  Sender: FDA-Public Use
  Company Number: IT-ROCHE-3434515

PATIENT
  Age: 80 Year
  Sex: Male
  Weight: 74 kg

DRUGS (15)
  1. VINCRISTINE SULFATE [Suspect]
     Active Substance: VINCRISTINE SULFATE
     Indication: Follicular lymphoma
     Dosage: 5 CYCLES OF OBINUTUZUMAB-CHOP
     Route: 065
     Dates: start: 20211122, end: 20220328
  2. DOXORUBICIN HYDROCHLORIDE [Suspect]
     Active Substance: DOXORUBICIN HYDROCHLORIDE
     Indication: Follicular lymphoma
     Dosage: 5 CYCLES OF OBINUTUZUMAB-CHOP
     Route: 065
     Dates: start: 20211122, end: 20220328
  3. RITUXIMAB [Suspect]
     Active Substance: RITUXIMAB
     Indication: Follicular lymphoma
     Dosage: UNK
     Route: 065
     Dates: start: 20191022, end: 20210618
  4. OBINUTUZUMAB [Suspect]
     Active Substance: OBINUTUZUMAB
     Indication: Follicular lymphoma
     Dosage: 5 CYCLES OF OBINUTUZUMAB-CHOP
     Route: 042
     Dates: start: 20211122, end: 20220328
  5. OBINUTUZUMAB [Suspect]
     Active Substance: OBINUTUZUMAB
     Dosage: 1ST CYCLE DAY 4SF 250 ML
     Route: 042
     Dates: start: 20211125
  6. OBINUTUZUMAB [Suspect]
     Active Substance: OBINUTUZUMAB
     Dosage: 1ST CYCLE DAY 12SF 250 ML
     Route: 042
     Dates: start: 20211201
  7. OBINUTUZUMAB [Suspect]
     Active Substance: OBINUTUZUMAB
     Dosage: 2ND CYCLE DAY 1SF 250 ML
     Route: 042
     Dates: start: 20211222
  8. OBINUTUZUMAB [Suspect]
     Active Substance: OBINUTUZUMAB
     Dosage: 3RD CYCLE DAY 1SF 250 ML
     Route: 042
     Dates: start: 20220112
  9. OBINUTUZUMAB [Suspect]
     Active Substance: OBINUTUZUMAB
     Dosage: 4TH CYCLE DAY 1SF 250 ML
     Route: 042
     Dates: start: 20220202
  10. OBINUTUZUMAB [Suspect]
     Active Substance: OBINUTUZUMAB
     Dosage: 5TH CYCLE DAY 1SF 250 ML
     Route: 042
     Dates: start: 20220328
  11. OBINUTUZUMAB [Suspect]
     Active Substance: OBINUTUZUMAB
     Dosage: UNK
  12. CYCLOPHOSPHAMIDE [Suspect]
     Active Substance: CYCLOPHOSPHAMIDE
     Indication: Follicular lymphoma
     Dosage: 5 CYCLES OF OBINUTUZUMAB-CHOP
     Route: 065
     Dates: start: 20211122, end: 20220328
  13. BENDAMUSTINE [Suspect]
     Active Substance: BENDAMUSTINE
     Indication: Follicular lymphoma
     Dosage: UNK
     Route: 065
     Dates: start: 20191022, end: 20210618
  14. PREDNISONE [Suspect]
     Active Substance: PREDNISONE
     Indication: Follicular lymphoma
     Dosage: 5 CYCLES OF OBINUTUZUMAB-CHOP
     Route: 065
     Dates: start: 20211122, end: 20220328
  15. IDELALISIB [Suspect]
     Active Substance: IDELALISIB
     Indication: Follicular lymphoma
     Dosage: UNK
     Route: 065
     Dates: end: 20231013

REACTIONS (2)
  - Neutropenia [Recovered/Resolved]
  - Thrombocytopenia [Recovered/Resolved]

NARRATIVE: CASE EVENT DATE: 20211209
